FAERS Safety Report 19886101 (Version 2)
Quarter: 2021Q4

REPORT INFORMATION
  Report Type: Report from Study
  Country: DE (occurrence: DE)
  Receive Date: 20210927
  Receipt Date: 20211019
  Transmission Date: 20220303
  Serious: Yes (Life-Threatening, Hospitalization)
  Sender: FDA-Public Use
  Company Number: DE-JNJFOC-20210941608

PATIENT
  Age: 44 Year
  Sex: Female
  Weight: 102 kg

DRUGS (1)
  1. QUETIAPINE [Suspect]
     Active Substance: QUETIAPINE
     Indication: Depression
     Dosage: MOST RECENT DOSE ADMINISTERED ON 20-SEP-2021
     Route: 048
     Dates: start: 20210830

REACTIONS (2)
  - Abdominal pain [Recovered/Resolved]
  - Appendicectomy [Recovered/Resolved]

NARRATIVE: CASE EVENT DATE: 20210919
